FAERS Safety Report 25504493 (Version 1)
Quarter: 2025Q3

REPORT INFORMATION
  Report Type: Spontaneous
  Country: CA (occurrence: CA)
  Receive Date: 20250702
  Receipt Date: 20250702
  Transmission Date: 20251020
  Serious: Yes (Hospitalization)
  Sender: PFIZER
  Company Number: CA-PFIZER INC-PV202400142334

PATIENT
  Age: 13 Year
  Sex: Female
  Weight: 105.7 kg

DRUGS (17)
  1. RAPAMUNE [Suspect]
     Active Substance: SIROLIMUS
     Indication: Lymphatic malformation
     Dosage: 3 MG, DAILY (2MG MORNING AND 1MG EVENING DAILY)
     Route: 048
     Dates: start: 20240419
  2. RAPAMUNE [Suspect]
     Active Substance: SIROLIMUS
     Dosage: 2 MG, 2X/DAY
     Route: 048
  3. ACETAMINOPHEN [Concomitant]
     Active Substance: ACETAMINOPHEN
     Route: 048
  4. CIPROFLOXACIN [Concomitant]
     Active Substance: CIPROFLOXACIN
  5. DROSPIRENONE [Concomitant]
     Active Substance: DROSPIRENONE
     Indication: Contraception
     Dosage: 4 MG, DAILY
     Route: 048
  6. FERROUS FUMARATE [Concomitant]
     Active Substance: FERROUS FUMARATE
     Dosage: 100 MG, 1X/DAY ( ELEMENTAL IRON CAPSULE)
     Route: 048
  7. IBUPROFEN [Concomitant]
     Active Substance: IBUPROFEN
     Indication: Pain
     Route: 048
  8. IBUPROFEN [Concomitant]
     Active Substance: IBUPROFEN
  9. NORETHINDRONE [Concomitant]
     Active Substance: NORETHINDRONE
  10. NORETHINDRONE ACETATE [Concomitant]
     Active Substance: NORETHINDRONE ACETATE
     Indication: Contraception
     Dosage: 0.35 MG, 1X/DAY
     Route: 048
  11. SEPTRA [Concomitant]
     Active Substance: SULFAMETHOXAZOLE\TRIMETHOPRIM
     Indication: Prophylaxis
     Dosage: 1 TABLET, DAILY
  12. SIROLIMUS [Concomitant]
     Active Substance: SIROLIMUS
     Indication: Skin lesion
     Dosage: UNK, 2X/DAY (PLEASE COMPOUND TO 1% CONCENTRATION)
     Route: 061
     Dates: start: 20241101
  13. SLYND [Concomitant]
     Active Substance: DROSPIRENONE
     Indication: Menstrual disorder
  14. TRANEXAMIN [Concomitant]
     Dosage: 1500 MG, 3X/DAY
     Route: 048
  15. TRANEXAMIN [Concomitant]
  16. SULFAMETHOXAZOLE\TRIMETHOPRIM [Concomitant]
     Active Substance: SULFAMETHOXAZOLE\TRIMETHOPRIM
     Dosage: 1 TABLET (800-160MG PER TABLET)
     Route: 048
  17. ZINC OXIDE [Concomitant]
     Active Substance: ZINC OXIDE
     Indication: Rash
     Dosage: UNK, 1X/DAY AS NEEDED
     Route: 061

REACTIONS (24)
  - Cellulitis [Recovering/Resolving]
  - Bacteraemia [Recovering/Resolving]
  - Off label use [Unknown]
  - Headache [Not Recovered/Not Resolved]
  - Dizziness [Recovered/Resolved]
  - Vomiting [Recovered/Resolved]
  - Nausea [Recovered/Resolved]
  - Physical disability [Unknown]
  - Skin infection [Unknown]
  - Acne [Unknown]
  - Pulse abnormal [Unknown]
  - Weight abnormal [Unknown]
  - Fibrin D dimer increased [Unknown]
  - Blood creatinine decreased [Unknown]
  - Blood bilirubin decreased [Unknown]
  - Alanine aminotransferase increased [Unknown]
  - Aspartate aminotransferase increased [Unknown]
  - Blood alkaline phosphatase decreased [Unknown]
  - Gamma-glutamyltransferase increased [Unknown]
  - Blood cholesterol increased [Unknown]
  - High density lipoprotein decreased [Unknown]
  - Non-high-density lipoprotein cholesterol increased [Unknown]
  - Low density lipoprotein increased [Unknown]
  - Transferrin decreased [Unknown]

NARRATIVE: CASE EVENT DATE: 20240101
